FAERS Safety Report 5520796-5 (Version None)
Quarter: 2007Q4

REPORT INFORMATION
  Report Type: 
  Country: None (occurrence: None)
  Receive Date: 20071116
  Receipt Date: 20071116
  Transmission Date: 20080405
  Serious: No
  Sender: FDA-Public Use
  Company Number: None

PATIENT
  Age: 23 Year

DRUGS (1)
  1. DILANTIN [Suspect]
     Indication: CONVULSION
     Dosage: 1200MG IN 1X1 IV
     Route: 042
     Dates: start: 20070805, end: 20070805

REACTIONS (1)
  - INFUSION SITE ERYTHEMA [None]
